FAERS Safety Report 6796233-X (Version None)
Quarter: 2010Q2

REPORT INFORMATION
  Report Type: 
  Country: None (occurrence: None)
  Receive Date: 20100624
  Receipt Date: 20100624
  Transmission Date: 20101027
  Serious: Yes (Hospitalization)
  Sender: FDA-Public Use
  Company Number: None

PATIENT
  Age: 35 Year
  Sex: Male
  Weight: 55 kg

DRUGS (3)
  1. EFFEXOR [Suspect]
     Indication: MAJOR DEPRESSION
     Dosage: 300MG -4 CAPSULES- DAILY PO, CHRONIC
     Route: 048
  2. SEROQUEL [Suspect]
     Indication: MAJOR DEPRESSION
     Dosage: 100MG QHS ; CHRONIC
  3. WELLBUTRIN [Concomitant]

REACTIONS (7)
  - DEHYDRATION [None]
  - HYPERTENSION [None]
  - MUSCLE TWITCHING [None]
  - RENAL FAILURE ACUTE [None]
  - SEROTONIN SYNDROME [None]
  - TACHYCARDIA [None]
  - URINARY RETENTION [None]
